FAERS Safety Report 9157427 (Version 1)
Quarter: 2013Q1

REPORT INFORMATION
  Report Type: Spontaneous
  Country: None (occurrence: None)
  Receive Date: 20130211
  Receipt Date: 20130211
  Transmission Date: 20140127
  Serious: No
  Sender: FDA-Public Use
  Company Number: 1301MEX014399

PATIENT
  Age: 3 Year
  Sex: Male

DRUGS (1)
  1. CEDAX (CEFTIBUTEN) CAPSULE [Suspect]
     Indication: URINARY TRACT INFECTION
     Route: 048

REACTIONS (2)
  - Drug ineffective [None]
  - Somnolence [None]
